FAERS Safety Report 7305741-4 (Version None)
Quarter: 2011Q1

REPORT INFORMATION
  Report Type: 
  Country: None (occurrence: None)
  Receive Date: 20110222
  Receipt Date: 20110216
  Transmission Date: 20110831
  Serious: Yes (Other)
  Sender: FDA-Public Use
  Company Number: A0914718A

PATIENT
  Age: 37 Year
  Sex: Female

DRUGS (2)
  1. XELODA [Suspect]
     Route: 065
     Dates: start: 20070801, end: 20080201
  2. TYKERB [Suspect]
     Indication: BREAST CANCER
     Route: 065
     Dates: start: 20070801, end: 20080201

REACTIONS (2)
  - PALMAR-PLANTAR ERYTHRODYSAESTHESIA SYNDROME [None]
  - PARONYCHIA [None]
